FAERS Safety Report 5357778-2 (Version None)
Quarter: 2007Q2

REPORT INFORMATION
  Report Type: 
  Country: None (occurrence: None)
  Receive Date: 20070614
  Receipt Date: 20070605
  Transmission Date: 20071010
  Serious: Yes (Other)
  Sender: FDA-Public Use
  Company Number: JP-PFIZER INC-2007047987

PATIENT
  Age: 75 Year
  Sex: Male

DRUGS (2)
  1. DIFLUCAN [Suspect]
     Indication: FUNGAEMIA
     Dosage: DAILY DOSE:100MG
     Route: 048
     Dates: start: 20070301, end: 20070531
  2. PREDONINE [Concomitant]

REACTIONS (1)
  - INTERSTITIAL LUNG DISEASE [None]
